FAERS Safety Report 9397469 (Version 2)
Quarter: 2013Q3

REPORT INFORMATION
  Report Type: Report from Study
  Country: US (occurrence: US)
  Receive Date: 20130712
  Receipt Date: 20130725
  Transmission Date: 20140515
  Serious: Yes (Other)
  Sender: FDA-Public Use
  Company Number: US-SANOFI-AVENTIS-2013SA063798

PATIENT
  Age: 46 Year
  Sex: Female
  Weight: 75.74 kg

DRUGS (15)
  1. AUBAGIO [Suspect]
     Indication: MULTIPLE SCLEROSIS
     Dosage: TAKEN FROM- 7 DAYS AGO
     Route: 048
     Dates: start: 201306, end: 20130616
  2. ADDERALL [Concomitant]
     Indication: FATIGUE
     Dosage: DOSE- TWO TABLETS
  3. WELLBUTRIN [Concomitant]
  4. ABILIFY [Concomitant]
  5. LANTUS [Concomitant]
     Route: 065
  6. NOVOLOG [Concomitant]
     Route: 065
  7. PROVIGIL [Concomitant]
     Route: 065
  8. SYMBICORT [Concomitant]
     Route: 065
  9. LYRICA [Concomitant]
     Route: 065
  10. PROTONIX [Concomitant]
     Route: 065
  11. METAMUCIL [Concomitant]
     Route: 065
  12. LANACANE [Concomitant]
     Route: 065
  13. ALBUTEROL [Concomitant]
     Route: 065
  14. HUMALOG [Concomitant]
  15. INSULIN DETEMIR [Concomitant]

REACTIONS (10)
  - Suicidal ideation [Recovered/Resolved]
  - Heart rate increased [Recovered/Resolved]
  - Dizziness [Not Recovered/Not Resolved]
  - Feeling hot [Not Recovered/Not Resolved]
  - Hyperhidrosis [Not Recovered/Not Resolved]
  - Fatigue [Not Recovered/Not Resolved]
  - Tremor [Recovered/Resolved]
  - Dyspnoea [Recovered/Resolved]
  - Anxiety [Recovered/Resolved]
  - Pyrexia [Recovered/Resolved]
